FAERS Safety Report 8353830-8 (Version None)
Quarter: 2012Q2

REPORT INFORMATION
  Report Type: 
  Country: None (occurrence: None)
  Receive Date: 20120511
  Receipt Date: 20111220
  Transmission Date: 20120825
  Serious: No
  Sender: FDA-Public Use
  Company Number: US-GLAXOSMITHKLINE-A0959013A

PATIENT
  Age: 42 Year
  Sex: Female

DRUGS (2)
  1. TYKERB [Suspect]
     Dosage: 1250MG PER DAY
     Route: 065
     Dates: start: 20111213
  2. XELODA [Suspect]
     Route: 065

REACTIONS (2)
  - MIDDLE INSOMNIA [None]
  - FATIGUE [None]
